FAERS Safety Report 13017475 (Version 1)
Quarter: 2016Q4

REPORT INFORMATION
  Report Type: Spontaneous
  Country: IT (occurrence: IT)
  Receive Date: 20161212
  Receipt Date: 20161212
  Transmission Date: 20170207
  Serious: Yes (Other)
  Sender: FDA-Public Use
  Company Number: IT-PFIZER INC-2016565154

PATIENT
  Age: 85 Year
  Sex: Female

DRUGS (9)
  1. CALCIUM SANDOZ /00060701/ [Concomitant]
     Active Substance: CALCIUM GLUCONATE
     Dosage: 600 MG, UNK
     Route: 048
  2. MACROGOL EG [Concomitant]
     Dosage: 2 DF, UNK
     Route: 048
  3. APIXABAN [Concomitant]
     Active Substance: APIXABAN
     Dosage: 5 MG, UNK
     Route: 048
  4. PANTOPRAZOLE [Concomitant]
     Active Substance: PANTOPRAZOLE SODIUM
     Dosage: 80 MG, UNK
     Route: 048
  5. ATORVASTATIN CALCIUM TRIHYDRATE [Concomitant]
     Active Substance: ATORVASTATIN CALCIUM
     Dosage: 20 MG, UNK
     Route: 048
  6. GLICLAZIDE [Concomitant]
     Active Substance: GLICLAZIDE
     Indication: DIABETES MELLITUS
     Dosage: 8 MG, UNK
     Route: 048
  7. PREGABALIN. [Suspect]
     Active Substance: PREGABALIN
     Dosage: 150 MG, SINGLE
     Route: 048
     Dates: start: 20161124, end: 20161124
  8. CLOPIDOGREL [Concomitant]
     Active Substance: CLOPIDOGREL BISULFATE
     Dosage: 75 MG, UNK
     Route: 048
  9. VILDAGLIPTINE [Concomitant]
     Indication: DIABETES MELLITUS
     Dosage: 100 MG, UNK
     Route: 048

REACTIONS (2)
  - Sopor [Recovering/Resolving]
  - Cerebral atrophy [Unknown]

NARRATIVE: CASE EVENT DATE: 20161124
